FAERS Safety Report 18088060 (Version 4)
Quarter: 2021Q1

REPORT INFORMATION
  Report Type: Report from Study
  Country: ES (occurrence: ES)
  Receive Date: 20200729
  Receipt Date: 20210214
  Transmission Date: 20210419
  Serious: Yes (Death)
  Sender: FDA-Public Use
  Company Number: ES-JNJFOC-20200729768

PATIENT
  Age: 72 Year
  Sex: Female
  Weight: 52.5 kg

DRUGS (6)
  1. LENALIDOMIDE [Suspect]
     Active Substance: LENALIDOMIDE
     Indication: PLASMA CELL MYELOMA
     Dosage: D1?D21
     Route: 048
     Dates: start: 20200710, end: 20200710
  2. DEXAMETHASONE. [Concomitant]
     Active Substance: DEXAMETHASONE
     Indication: PLASMA CELL MYELOMA
     Route: 065
  3. CARFILZOMIB [Suspect]
     Active Substance: CARFILZOMIB
     Indication: PLASMA CELL MYELOMA
     Dosage: D1, D2. D8, D9, D15, D16.
     Route: 042
     Dates: start: 20200710, end: 20200710
  4. SEGURIL [Concomitant]
     Active Substance: FUROSEMIDE
     Indication: OEDEMA
     Route: 042
     Dates: start: 20200710, end: 20200710
  5. VORTIOXETINE. [Concomitant]
     Active Substance: VORTIOXETINE
     Indication: DEPRESSION
     Route: 065
     Dates: end: 20200710
  6. DARATUMUMAB [Suspect]
     Active Substance: DARATUMUMAB
     Indication: PLASMA CELL MYELOMA
     Route: 042
     Dates: start: 20200710, end: 20200710

REACTIONS (1)
  - Pneumonia [Fatal]

NARRATIVE: CASE EVENT DATE: 20200710
